FAERS Safety Report 9253658 (Version 1)
Quarter: 2013Q2

REPORT INFORMATION
  Report Type: Spontaneous
  Country: US (occurrence: US)
  Receive Date: 20130425
  Receipt Date: 20130425
  Transmission Date: 20140414
  Serious: Yes (Death, Hospitalization)
  Sender: FDA-Public Use
  Company Number: US-ALVOGEN-2013AL000208

PATIENT
  Age: 57 Year
  Sex: Female

DRUGS (6)
  1. DOXORUBICIN [Suspect]
     Indication: UTERINE CANCER
  2. DOXORUBICIN [Suspect]
     Indication: UTERINE CANCER
     Route: 042
  3. CARBOPLATIN [Concomitant]
     Indication: UTERINE CANCER
  4. CARBOPLATIN [Concomitant]
     Indication: UTERINE CANCER
  5. PACLITAXEL [Concomitant]
     Indication: UTERINE CANCER
  6. PACLITAXEL [Concomitant]
     Indication: UTERINE CANCER

REACTIONS (3)
  - Pulmonary fibrosis [Fatal]
  - Cerebral infarction [Fatal]
  - Sepsis [Fatal]
